FAERS Safety Report 9875945 (Version 2)
Quarter: 2014Q1

REPORT INFORMATION
  Report Type: Other
  Country: US (occurrence: US)
  Receive Date: 20140206
  Receipt Date: 20140206
  Transmission Date: 20141002
  Serious: No
  Sender: FDA-Public Use
  Company Number: US-ACORDA-ACO_35644_2013

PATIENT
  Sex: Female
  Weight: 72.56 kg

DRUGS (9)
  1. AMPYRA [Suspect]
     Indication: GAIT DISTURBANCE
     Dosage: 10 MG, BID
     Route: 048
     Dates: start: 201003, end: 2011
  2. AMPYRA [Suspect]
     Dosage: 10 MG, QD
     Route: 048
     Dates: end: 20130326
  3. REBIF [Concomitant]
     Indication: MULTIPLE SCLEROSIS
     Dosage: 44 MG, TIW
     Route: 058
  4. VICODIN [Concomitant]
     Indication: MUSCLE SPASTICITY
     Dosage: 7.5/500 5X DAILY
     Route: 048
  5. BACLOFEN [Concomitant]
     Indication: MUSCLE SPASTICITY
     Dosage: 20 MG, QID
     Route: 048
  6. OTHER THERAPEUTIC PRODUCTS [Concomitant]
     Indication: HYPERTENSION
     Dosage: 5/6.25 QAM
     Route: 048
  7. PROZAC [Concomitant]
     Indication: DEPRESSION
     Dosage: 60 MG, QD
     Route: 048
  8. TEGRETOL [Concomitant]
     Indication: NEURALGIA
     Dosage: 200 MG, TID
     Route: 048
  9. NUVIGIL [Concomitant]
     Indication: FATIGUE
     Dosage: 250 MG, QD AM
     Route: 048

REACTIONS (2)
  - Therapeutic response unexpected [Unknown]
  - Back pain [Recovered/Resolved]
